FAERS Safety Report 5740725-9 (Version None)
Quarter: 2008Q2

REPORT INFORMATION
  Report Type: 
  Country: None (occurrence: None)
  Receive Date: 20080516
  Receipt Date: 20080506
  Transmission Date: 20081010
  Serious: Yes (Other)
  Sender: FDA-Public Use
  Company Number: US-PFIZER INC-2006115085

PATIENT
  Age: 54 Year
  Sex: Female
  Weight: 70.3 kg

DRUGS (12)
  1. LYRICA [Interacting]
     Indication: NEURALGIA
     Route: 048
     Dates: start: 20060901, end: 20060901
  2. AMBIEN [Interacting]
  3. SONATA [Suspect]
     Dates: start: 20060901, end: 20060901
  4. FLEXERIL [Suspect]
  5. BOTOX COSMETIC [Suspect]
     Indication: MIGRAINE
  6. TRAZODONE HCL [Concomitant]
  7. CYCLOSPORINE [Concomitant]
     Indication: DRY EYE
  8. LEVOTHYROXINE SODIUM [Concomitant]
  9. MIRALAX [Concomitant]
  10. MONTELUKAST SODIUM [Concomitant]
  11. PROTONIX [Concomitant]
  12. VERELAN [Concomitant]

REACTIONS (11)
  - CHROMATURIA [None]
  - DRUG INTERACTION [None]
  - FEELING ABNORMAL [None]
  - HALLUCINATION, VISUAL [None]
  - HYPOTONIA [None]
  - INCORRECT DOSE ADMINISTERED [None]
  - MUSCULOSKELETAL DISCOMFORT [None]
  - NIGHTMARE [None]
  - POOR QUALITY SLEEP [None]
  - SLEEP DISORDER [None]
  - URINARY TRACT INFECTION [None]
